FAERS Safety Report 17960199 (Version 1)
Quarter: 2020Q2

REPORT INFORMATION
  Report Type: Spontaneous
  Country: US (occurrence: US)
  Receive Date: 20200628
  Receipt Date: 20200628
  Transmission Date: 20200714
  Serious: Yes (Hospitalization)
  Sender: FDA-Public Use
  Company Number: None

PATIENT
  Sex: Female

DRUGS (1)
  1. COPAXONE [Suspect]
     Active Substance: GLATIRAMER ACETATE
     Indication: MULTIPLE SCLEROSIS
     Route: 058
     Dates: start: 20100617

REACTIONS (8)
  - Balance disorder [None]
  - Emotional distress [None]
  - Dizziness [None]
  - Head injury [None]
  - Dysstasia [None]
  - Fall [None]
  - Asthenia [None]
  - Vomiting [None]
